FAERS Safety Report 13467953 (Version 2)
Quarter: 2017Q3

REPORT INFORMATION
  Report Type: Report from Study
  Country: US (occurrence: US)
  Receive Date: 20170421
  Receipt Date: 20170907
  Transmission Date: 20171127
  Serious: Yes (Hospitalization, Other)
  Sender: FDA-Public Use
  Company Number: US-JNJFOC-20170303043

PATIENT
  Age: 82 Year
  Sex: Male

DRUGS (14)
  1. COMBIVENT [Concomitant]
     Active Substance: ALBUTEROL SULFATE\IPRATROPIUM BROMIDE
  2. LYRICA [Concomitant]
     Active Substance: PREGABALIN
  3. FORTICAL [Concomitant]
     Active Substance: CALCITONIN SALMON
  4. BENDAMUSTINE [Concomitant]
     Active Substance: BENDAMUSTINE
     Dates: start: 20160107
  5. EFUDEX [Concomitant]
     Active Substance: FLUOROURACIL
  6. CALCIUM [Concomitant]
     Active Substance: CALCIUM
  7. IMBRUVICA [Suspect]
     Active Substance: IBRUTINIB
     Indication: CHRONIC LYMPHOCYTIC LEUKAEMIA
     Dosage: ORAL ROOT
     Route: 065
     Dates: start: 20170124
  8. ZYLOPRIM [Concomitant]
     Active Substance: ALLOPURINOL
  9. IMBRUVICA [Suspect]
     Active Substance: IBRUTINIB
     Indication: CHRONIC LYMPHOCYTIC LEUKAEMIA
     Route: 065
     Dates: start: 20170105
  10. ASMANEX [Concomitant]
     Active Substance: MOMETASONE FUROATE
  11. COMPAZINE [Concomitant]
     Active Substance: PROCHLORPERAZINE MALEATE
  12. RITUXIMAB. [Concomitant]
     Active Substance: RITUXIMAB
     Dates: start: 20160107
  13. MIRALAX [Concomitant]
     Active Substance: POLYETHYLENE GLYCOL 3350
  14. NORCO [Concomitant]
     Active Substance: ACETAMINOPHEN\HYDROCODONE BITARTRATE

REACTIONS (10)
  - Immunodeficiency [Recovered/Resolved]
  - Neutrophil count decreased [Recovered/Resolved]
  - Fatigue [Not Recovered/Not Resolved]
  - Nephrolithiasis [Recovered/Resolved]
  - White blood cell count increased [Recovered/Resolved]
  - Headache [Recovered/Resolved]
  - Cholelithiasis [Recovered/Resolved]
  - Post procedural haemorrhage [Unknown]
  - Cystitis [Recovered/Resolved]
  - Pneumonia [Recovered/Resolved]

NARRATIVE: CASE EVENT DATE: 201701
